FAERS Safety Report 8033447-5 (Version None)
Quarter: 2012Q1

REPORT INFORMATION
  Report Type: 
  Country: None (occurrence: None)
  Receive Date: 20120110
  Receipt Date: 20120104
  Transmission Date: 20120608
  Serious: Yes (Hospitalization)
  Sender: FDA-Public Use
  Company Number: PL-ROCHE-1027408

PATIENT
  Sex: Male
  Weight: 71 kg

DRUGS (3)
  1. COPEGUS [Suspect]
     Indication: HEPATITIS C
     Route: 048
     Dates: start: 20110223, end: 20111230
  2. PEGINTERFERON ALFA-2A [Suspect]
     Indication: HEPATITIS C
     Route: 058
     Dates: start: 20110223, end: 20111230
  3. PENTOXYVERINE [Concomitant]
     Indication: VERTIGO
     Dates: start: 20110831, end: 20111221

REACTIONS (4)
  - ASTHENIA [None]
  - HEPATIC CIRRHOSIS [None]
  - ASCITES [None]
  - INSOMNIA [None]
